FAERS Safety Report 12384787 (Version 1)
Quarter: 2016Q2

REPORT INFORMATION
  Report Type: Spontaneous
  Country: TR (occurrence: TR)
  Receive Date: 20160519
  Receipt Date: 20160519
  Transmission Date: 20160815
  Serious: Yes (Death, Other)
  Sender: FDA-Public Use
  Company Number: TR-BAYER-2016-090100

PATIENT
  Age: 64 Year
  Sex: Male

DRUGS (1)
  1. ACETYLSALICYLIC ACID({=100 MG) [Suspect]
     Active Substance: ASPIRIN

REACTIONS (8)
  - General anaesthesia [None]
  - Hemiplegia [None]
  - Abdominal pain lower [None]
  - Adenocarcinoma of appendix [None]
  - Septic shock [Fatal]
  - Pneumonia [Fatal]
  - Laparotomy [None]
  - Appendicitis perforated [None]
